FAERS Safety Report 24133762 (Version 2)
Quarter: 2024Q3

REPORT INFORMATION
  Report Type: Spontaneous
  Country: US (occurrence: US)
  Receive Date: 20240724
  Receipt Date: 20240819
  Transmission Date: 20241017
  Serious: Yes (Other)
  Sender: TEVA
  Company Number: US-TEVA-VS-3222679

PATIENT
  Age: 28 Year
  Sex: Male

DRUGS (14)
  1. DOXORUBICIN [Suspect]
     Active Substance: DOXORUBICIN
     Indication: B-cell type acute leukaemia
     Route: 065
     Dates: start: 1975, end: 1984
  2. THIOGUANINE [Suspect]
     Active Substance: THIOGUANINE
     Indication: B-cell type acute leukaemia
     Route: 065
     Dates: start: 1975, end: 1984
  3. PREDNISONE [Suspect]
     Active Substance: PREDNISONE
     Indication: B-cell type acute leukaemia
     Route: 065
     Dates: start: 1975, end: 1984
  4. DACTINOMYCIN [Suspect]
     Active Substance: DACTINOMYCIN
     Indication: B-cell type acute leukaemia
     Route: 065
     Dates: start: 1975, end: 1984
  5. VINCRISTINE [Suspect]
     Active Substance: VINCRISTINE
     Indication: B-cell type acute leukaemia
     Route: 065
     Dates: start: 1975, end: 1984
  6. HYDROXYUREA [Suspect]
     Active Substance: HYDROXYUREA
     Indication: B-cell type acute leukaemia
     Route: 065
     Dates: start: 1975, end: 1984
  7. CYCLOPHOSPHAMIDE [Suspect]
     Active Substance: CYCLOPHOSPHAMIDE
     Indication: B-cell type acute leukaemia
     Route: 065
     Dates: start: 1975, end: 1984
  8. CARMUSTINE [Suspect]
     Active Substance: CARMUSTINE
     Indication: B-cell type acute leukaemia
     Route: 065
     Dates: start: 1975, end: 1984
  9. METHOTREXATE [Suspect]
     Active Substance: METHOTREXATE
     Indication: B-cell type acute leukaemia
     Route: 037
  10. METHOTREXATE [Suspect]
     Active Substance: METHOTREXATE
     Indication: B-cell type acute leukaemia
     Route: 048
  11. METHOTREXATE [Suspect]
     Active Substance: METHOTREXATE
     Indication: B-cell type acute leukaemia
     Route: 042
  12. CYTARABINE [Suspect]
     Active Substance: CYTARABINE
     Indication: B-cell type acute leukaemia
     Route: 042
  13. CYTARABINE [Suspect]
     Active Substance: CYTARABINE
     Indication: B-cell type acute leukaemia
     Route: 037
  14. ASPARAGINASE [Suspect]
     Active Substance: ASPARAGINASE
     Indication: B-cell type acute leukaemia
     Route: 065
     Dates: start: 1975, end: 1984

REACTIONS (1)
  - Pleuroparenchymal fibroelastosis [Recovering/Resolving]
